FAERS Safety Report 8558806-3 (Version None)
Quarter: 2012Q3

REPORT INFORMATION
  Report Type: 
  Country: None (occurrence: None)
  Receive Date: 20120801
  Receipt Date: 20120718
  Transmission Date: 20120928
  Serious: Yes (Hospitalization, Other)
  Sender: FDA-Public Use
  Company Number: US-009507513-1204USA00884

PATIENT

DRUGS (8)
  1. METFORMIN HYDROCHLORIDE [Concomitant]
     Indication: DIABETES MELLITUS
  2. FOSAMAX [Suspect]
     Indication: OSTEOPOROSIS
     Dosage: 70 MG, QW
     Route: 048
     Dates: start: 20030101
  3. FOSAMAX [Suspect]
     Indication: OSTEOPENIA
  4. INSULIN LISPRO [Concomitant]
     Indication: DIABETES MELLITUS
  5. NOVOLOG [Concomitant]
     Indication: DIABETES MELLITUS
  6. LANTUS [Concomitant]
     Indication: DIABETES MELLITUS
  7. NOVOLIN N [Concomitant]
     Indication: DIABETES MELLITUS
  8. LYRICA [Concomitant]
     Indication: FIBROMYALGIA

REACTIONS (65)
  - HEARING IMPAIRED [None]
  - UPPER RESPIRATORY TRACT INFECTION [None]
  - DIABETES MELLITUS INADEQUATE CONTROL [None]
  - NEPHROPATHY [None]
  - SLEEP APNOEA SYNDROME [None]
  - BINGE EATING [None]
  - PHARYNGITIS [None]
  - NASAL CONGESTION [None]
  - SPINAL OSTEOARTHRITIS [None]
  - HEADACHE [None]
  - CATARACT [None]
  - PACKED RED BLOOD CELL TRANSFUSION [None]
  - CARDIAC FAILURE CONGESTIVE [None]
  - IMPAIRED HEALING [None]
  - HYPERCHOLESTEROLAEMIA [None]
  - DIABETIC NEUROPATHY [None]
  - JOINT EFFUSION [None]
  - CARDIOMEGALY [None]
  - BACK PAIN [None]
  - ROTATOR CUFF SYNDROME [None]
  - LOW TURNOVER OSTEOPATHY [None]
  - ANAEMIA [None]
  - SCIATICA [None]
  - ASTHMA [None]
  - CLAUSTROPHOBIA [None]
  - FEMUR FRACTURE [None]
  - SYSTEMIC INFLAMMATORY RESPONSE SYNDROME [None]
  - ANORECTAL DISORDER [None]
  - CHOLELITHIASIS [None]
  - SYSTEMIC LUPUS ERYTHEMATOSUS [None]
  - OSTEOARTHRITIS [None]
  - ANAEMIA OF CHRONIC DISEASE [None]
  - CUSHING'S SYNDROME [None]
  - COMPRESSION FRACTURE [None]
  - DRUG INEFFECTIVE [None]
  - CELLULITIS [None]
  - JOINT ABSCESS [None]
  - PNEUMOTHORAX [None]
  - BREAST CANCER IN SITU [None]
  - SPINAL FRACTURE [None]
  - PNEUMONIA [None]
  - COLON ADENOMA [None]
  - FIBROMYALGIA [None]
  - GASTROENTERITIS [None]
  - LUNG NEOPLASM [None]
  - SWELLING [None]
  - BRONCHITIS [None]
  - FUNGAL INFECTION [None]
  - HYPERLIPIDAEMIA [None]
  - MYALGIA [None]
  - IRON DEFICIENCY ANAEMIA [None]
  - CONJUNCTIVITIS ALLERGIC [None]
  - DEAFNESS [None]
  - SEPSIS [None]
  - LIMB OPERATION [None]
  - INTESTINAL POLYP [None]
  - DEHYDRATION [None]
  - ARTHRALGIA [None]
  - FALL [None]
  - WEIGHT INCREASED [None]
  - HYPOKALAEMIA [None]
  - BLADDER DISORDER [None]
  - RETINOPATHY [None]
  - MAGNESIUM METABOLISM DISORDER [None]
  - PULMONARY CONGESTION [None]
